FAERS Safety Report 20411501 (Version 2)
Quarter: 2022Q1

REPORT INFORMATION
  Report Type: Report from Study
  Country: GB (occurrence: None)
  Receive Date: 20220201
  Receipt Date: 20220209
  Transmission Date: 20220423
  Serious: Yes (Other)
  Sender: FDA-Public Use
  Company Number: GB-Merck Healthcare KGaA-9245525

PATIENT
  Age: 56 Year
  Sex: Female
  Weight: 73 kg

DRUGS (26)
  1. AVELUMAB [Suspect]
     Active Substance: AVELUMAB
     Indication: Alveolar soft part sarcoma metastatic
     Dosage: 701 MG
     Route: 042
     Dates: start: 20201221, end: 20210524
  2. LEVOTHYROXINE [Concomitant]
     Active Substance: LEVOTHYROXINE
     Indication: Hypothyroidism
     Route: 048
     Dates: start: 1995
  3. LEVOTHYROXINE [Concomitant]
     Active Substance: LEVOTHYROXINE
     Route: 048
     Dates: start: 20210607
  4. OXYCODONE [Concomitant]
     Active Substance: OXYCODONE
     Indication: Pain
     Dosage: MODIFIED RELEASE
     Route: 048
     Dates: start: 201409
  5. OXYCODONE [Concomitant]
     Active Substance: OXYCODONE
     Dosage: IMMEDIATE RELEASE
     Route: 048
     Dates: start: 201409
  6. OXYCODONE [Concomitant]
     Active Substance: OXYCODONE
     Dosage: MODIFIED RELEASE
     Route: 048
     Dates: start: 20210607
  7. OXYCODONE [Concomitant]
     Active Substance: OXYCODONE
     Dosage: IMMEDIATE RELEASE
     Route: 048
     Dates: start: 20210607
  8. GABAPENTIN [Concomitant]
     Active Substance: GABAPENTIN
     Indication: Pain
     Route: 048
     Dates: start: 20201231
  9. GABAPENTIN [Concomitant]
     Active Substance: GABAPENTIN
     Route: 048
     Dates: start: 20210607
  10. ACETAMINOPHEN [Concomitant]
     Active Substance: ACETAMINOPHEN
     Indication: Pain
     Route: 048
     Dates: start: 20210104
  11. ACETAMINOPHEN [Concomitant]
     Active Substance: ACETAMINOPHEN
     Route: 048
     Dates: start: 20210606
  12. DULCOLAX (BISACODYL) [Concomitant]
     Active Substance: BISACODYL
     Indication: Constipation
     Route: 048
     Dates: start: 201409
  13. DULCOLAX (BISACODYL) [Concomitant]
     Active Substance: BISACODYL
     Route: 048
     Dates: start: 20210606
  14. DOCUSATE SODIUM [Concomitant]
     Active Substance: DOCUSATE SODIUM
     Indication: Constipation
     Route: 048
     Dates: start: 201409
  15. DOCUSATE SODIUM [Concomitant]
     Active Substance: DOCUSATE SODIUM
     Dates: start: 20210606
  16. XAILIN [Concomitant]
     Indication: Dry eye
     Dosage: ONE DROP
     Route: 047
     Dates: start: 201409
  17. XAILIN [Concomitant]
     Dosage: ONE DROP
     Route: 047
     Dates: start: 20210606
  18. HYALURONIDASE [Concomitant]
     Active Substance: HYALURONIDASE
     Indication: Dry eye
     Dosage: ONE DROP
     Route: 047
     Dates: start: 201409
  19. HYALURONIDASE [Concomitant]
     Active Substance: HYALURONIDASE
     Dosage: ONE DROP
     Route: 047
     Dates: start: 20210606
  20. ERGOCALCIFEROL [Concomitant]
     Active Substance: ERGOCALCIFEROL
     Indication: Prophylaxis
     Route: 048
     Dates: start: 20210219
  21. ERGOCALCIFEROL [Concomitant]
     Active Substance: ERGOCALCIFEROL
     Route: 048
     Dates: start: 20210607
  22. ASTRAZENECA COVID-19 VACCINE [Concomitant]
     Active Substance: AZD-1222
     Indication: COVID-19 immunisation
     Dates: start: 20210128, end: 20210128
  23. ASTRAZENECA COVID-19 VACCINE [Concomitant]
     Active Substance: AZD-1222
     Dates: start: 20210415, end: 20210415
  24. XAILIN [Concomitant]
     Indication: Product used for unknown indication
     Dates: start: 20140915
  25. EYE DROPS [TETRYZOLINE HYDROCHLORIDE] [Concomitant]
     Indication: Product used for unknown indication
     Dates: start: 20140915
  26. NEUTROGENA HEALTHY SKIN [Concomitant]
     Indication: Product used for unknown indication
     Dates: start: 20201228

REACTIONS (1)
  - Immune-mediated hepatitis [Recovered/Resolved]

NARRATIVE: CASE EVENT DATE: 20210607
